FAERS Safety Report 6938224-1 (Version None)
Quarter: 2010Q3

REPORT INFORMATION
  Report Type: 
  Country: None (occurrence: None)
  Receive Date: 20100824
  Receipt Date: 20100811
  Transmission Date: 20110219
  Serious: Yes (Other)
  Sender: FDA-Public Use
  Company Number: DE-ELI_LILLY_AND_COMPANY-DE201008003269

PATIENT
  Age: 48 Year
  Sex: Male

DRUGS (14)
  1. LISPRO [Suspect]
     Indication: DIABETES MELLITUS
     Dosage: UNK, UNKNOWN
     Route: 058
  2. HUMULIN R [Suspect]
     Indication: DIABETES MELLITUS
     Dosage: UNK, UNKNOWN
     Route: 058
  3. PENTAERYTHRITOL TETRANITRATE [Concomitant]
  4. METFORMIN HCL [Concomitant]
  5. SIMVASTATIN [Concomitant]
  6. ASPIRIN [Concomitant]
  7. MOLSIDOMIN [Concomitant]
  8. GABAPENTIN [Concomitant]
  9. OMEP [Concomitant]
  10. ISOSORBIDE DINITRATE [Concomitant]
  11. ALLOPURINOL [Concomitant]
  12. PROPRANOLOL [Concomitant]
  13. OLMESARTAN MEDOXOMIL [Concomitant]
  14. KALINOR [Concomitant]

REACTIONS (4)
  - FALL [None]
  - IMPAIRED HEALING [None]
  - LIMB INJURY [None]
  - OSTEITIS [None]
